FAERS Safety Report 6386700-5 (Version None)
Quarter: 2009Q4

REPORT INFORMATION
  Report Type: 
  Country: None (occurrence: None)
  Receive Date: 20091002
  Receipt Date: 20090922
  Transmission Date: 20100525
  Serious: Yes (Death, Other)
  Sender: FDA-Public Use
  Company Number: GB-JNJFOC-20090401361

PATIENT
  Age: 67 Year
  Sex: Male
  Weight: 89 kg

DRUGS (7)
  1. REMICADE [Suspect]
     Indication: RHEUMATOID ARTHRITIS
     Route: 042
  2. METHOTREXATE [Concomitant]
  3. ASPIRIN [Concomitant]
  4. FOLIC ACID [Concomitant]
  5. PREDNISONE TAB [Concomitant]
  6. OMEPRAZOLE [Concomitant]
  7. TRAMADOL HCL [Concomitant]

REACTIONS (3)
  - BRONCHIECTASIS [None]
  - BRONCHOPNEUMONIA [None]
  - ULNA FRACTURE [None]
